FAERS Safety Report 22071881 (Version 2)
Quarter: 2023Q1

REPORT INFORMATION
  Report Type: Report from Study
  Country: AE (occurrence: AE)
  Receive Date: 20230307
  Receipt Date: 20230314
  Transmission Date: 20230418
  Serious: Yes (Death, Hospitalization, Other)
  Sender: FDA-Public Use
  Company Number: AE-SERVIER-S23002132

PATIENT
  Age: 71 Year
  Sex: Male

DRUGS (1)
  1. IVABRADINE [Suspect]
     Active Substance: IVABRADINE
     Indication: Cardiac failure
     Dosage: UNK MG
     Route: 048
     Dates: start: 202109, end: 202302

REACTIONS (1)
  - Death [Fatal]

NARRATIVE: CASE EVENT DATE: 20230214
